FAERS Safety Report 4267814-2 (Version None)
Quarter: 2004Q1

REPORT INFORMATION
  Report Type: 
  Country: None (occurrence: None)
  Receive Date: 20040109
  Receipt Date: 20010530
  Transmission Date: 20041129
  Serious: Yes (Hospitalization)
  Sender: FDA-Public Use
  Company Number: US-GLAXOSMITHKLINE-A0149544A

PATIENT
  Age: 59 Year
  Sex: Female
  Weight: 68.2 kg

DRUGS (2)
  1. WELLBUTRIN [Suspect]
     Indication: DEPRESSION
     Route: 048
  2. NICOTROL [Suspect]

REACTIONS (12)
  - ABASIA [None]
  - AMNESIA [None]
  - BRAIN DAMAGE [None]
  - CONCUSSION [None]
  - CONVULSION [None]
  - DIFFICULTY IN WALKING [None]
  - FALL [None]
  - HEAD INJURY [None]
  - IMPAIRED WORK ABILITY [None]
  - LOSS OF CONSCIOUSNESS [None]
  - LUMBAR VERTEBRAL FRACTURE [None]
  - MEMORY IMPAIRMENT [None]
